FAERS Safety Report 21902494 (Version 2)
Quarter: 2023Q1

REPORT INFORMATION
  Report Type: Spontaneous
  Country: US (occurrence: None)
  Receive Date: 20230124
  Receipt Date: 20230320
  Transmission Date: 20230417
  Serious: No
  Sender: FDA-Public Use
  Company Number: 2023A015485

PATIENT
  Age: 25658 Day
  Sex: Male
  Weight: 90.7 kg

DRUGS (1)
  1. IMFINZI [Suspect]
     Active Substance: DURVALUMAB
     Indication: Neoplasm malignant
     Route: 058
     Dates: start: 20230112

REACTIONS (6)
  - Pyrexia [Unknown]
  - Chills [Unknown]
  - Feeling hot [Unknown]
  - Feeling cold [Unknown]
  - Cough [Unknown]
  - Feeling abnormal [Unknown]

NARRATIVE: CASE EVENT DATE: 20230112
